FAERS Safety Report 25169073 (Version 1)
Quarter: 2025Q2

REPORT INFORMATION
  Report Type: Spontaneous
  Country: US (occurrence: US)
  Receive Date: 20250407
  Receipt Date: 20250407
  Transmission Date: 20250717
  Serious: Yes (Other)
  Sender: BAYER
  Company Number: US-BAYER-2025A043933

PATIENT
  Age: 60 Year
  Sex: Female

DRUGS (1)
  1. ALKA-SELTZER PLUS COLD DAY AND NIGHT POWERMAX GELS [Suspect]
     Active Substance: ACETAMINOPHEN\DEXTROMETHORPHAN HYDROBROMIDE\DOXYLAMINE SUCCINATE\PHENYLEPHRINE HYDROCHLORIDE
     Indication: Product used for unknown indication
     Route: 048

REACTIONS (3)
  - Foreign body in throat [Recovered/Resolved]
  - Choking [Recovered/Resolved]
  - Incorrect dose administered [Recovered/Resolved]
